FAERS Safety Report 7550401-8 (Version None)
Quarter: 2011Q2

REPORT INFORMATION
  Report Type: 
  Country: None (occurrence: None)
  Receive Date: 20110615
  Receipt Date: 20110531
  Transmission Date: 20111010
  Serious: Yes (Other)
  Sender: FDA-Public Use
  Company Number: US-BAYER-2011-047422

PATIENT
  Age: 78 Year
  Sex: Male
  Weight: 68 kg

DRUGS (2)
  1. LIPITOR [Concomitant]
  2. ASPIRIN [Suspect]
     Dosage: 81 MG, QD, BOTTLE COUNT 120S
     Route: 048
     Dates: start: 20110520, end: 20110529

REACTIONS (3)
  - VISION BLURRED [None]
  - FAECES DISCOLOURED [None]
  - TINNITUS [None]
